FAERS Safety Report 15743113 (Version 2)
Quarter: 2019Q2

REPORT INFORMATION
  Report Type: Report from Study
  Country: DE (occurrence: DE)
  Receive Date: 20181220
  Receipt Date: 20190612
  Transmission Date: 20190711
  Serious: No
  Sender: FDA-Public Use
  Company Number: DE-ROCHE-2233579

PATIENT
  Age: 34 Year
  Sex: Female

DRUGS (14)
  1. PANTOPRAZOL [PANTOPRAZOLE] [Concomitant]
     Active Substance: PANTOPRAZOLE
     Indication: CHRONIC GASTRITIS
     Route: 048
     Dates: start: 20181015
  2. PREDNIFLUID [Concomitant]
     Indication: UVEITIS
     Route: 047
     Dates: start: 20181122
  3. PREDNISOLONE. [Concomitant]
     Active Substance: PREDNISOLONE
     Indication: JOINT EFFUSION
     Route: 048
     Dates: start: 20190107
  4. OCRELIZUMAB. [Suspect]
     Active Substance: OCRELIZUMAB
     Indication: MULTIPLE SCLEROSIS
     Route: 042
     Dates: start: 20180605, end: 20180619
  5. FENISTIL [Concomitant]
     Active Substance: DIMETHINDENE
     Indication: PREMEDICATION
     Route: 042
     Dates: start: 20180619, end: 20180619
  6. IBUPROFEN. [Concomitant]
     Active Substance: IBUPROFEN
     Indication: MYALGIA
     Route: 048
     Dates: start: 20180928
  7. ZYKLOLAT [Concomitant]
     Indication: UVEITIS
     Route: 047
     Dates: start: 20181212
  8. OCRELIZUMAB. [Suspect]
     Active Substance: OCRELIZUMAB
     Indication: MULTIPLE SCLEROSIS
     Route: 042
     Dates: start: 20181213
  9. METRONIDAZOL [METRONIDAZOLE] [Concomitant]
     Active Substance: METRONIDAZOLE
     Indication: HELICOBACTER INFECTION
     Route: 048
     Dates: start: 20181018, end: 20181024
  10. CLARITHROMYCIN. [Concomitant]
     Active Substance: CLARITHROMYCIN
     Indication: HELICOBACTER INFECTION
     Route: 048
     Dates: start: 20181018, end: 20181024
  11. FENISTIL [Concomitant]
     Active Substance: DIMETHINDENE
     Indication: PREMEDICATION
     Route: 042
     Dates: start: 20180605, end: 20180605
  12. METHYPRED [Concomitant]
     Indication: PREMEDICATION
     Route: 042
     Dates: start: 20180619, end: 20180619
  13. PREDNIFLUID [Concomitant]
     Route: 047
     Dates: start: 20181122, end: 20181212
  14. METHYPRED [Concomitant]
     Indication: PREMEDICATION
     Route: 042
     Dates: start: 20180605, end: 20180605

REACTIONS (1)
  - Bacteriuria [Recovered/Resolved]

NARRATIVE: CASE EVENT DATE: 20180814
